FAERS Safety Report 8969270 (Version 1)
Quarter: 2012Q4

REPORT INFORMATION
  Report Type: 
  Country: US (occurrence: US)
  Receive Date: 20121218
  Receipt Date: 20121218
  Transmission Date: 20130627
  Serious: Yes (Hospitalization, Other)
  Sender: FDA-Public Use
  Company Number: US-AMGEN-USASP2012080386

PATIENT
  Sex: Female

DRUGS (1)
  1. ENBREL [Suspect]
     Indication: RHEUMATOID ARTHRITIS
     Dosage: 50 mg, qwk
     Dates: start: 20000101

REACTIONS (9)
  - Renal failure [Not Recovered/Not Resolved]
  - Myocardial infarction [Recovered/Resolved]
  - Infection [Recovered/Resolved]
  - Road traffic accident [Not Recovered/Not Resolved]
  - Nasal congestion [Recovered/Resolved]
  - Pain in extremity [Not Recovered/Not Resolved]
  - Oral candidiasis [Recovered/Resolved]
  - Injection site pain [Recovered/Resolved]
  - Pharyngitis streptococcal [Recovered/Resolved]
